FAERS Safety Report 6794552-4 (Version None)
Quarter: 2010Q2

REPORT INFORMATION
  Report Type: 
  Country: None (occurrence: None)
  Receive Date: 20100625
  Receipt Date: 20100615
  Transmission Date: 20101027
  Serious: Yes (Other)
  Sender: FDA-Public Use
  Company Number: US-PFIZER INC-2010066410

PATIENT
  Sex: Male
  Weight: 73.469 kg

DRUGS (5)
  1. ZOLOFT [Suspect]
     Indication: DEPRESSION
     Dosage: 100 MG, 1X/DAY
     Route: 048
     Dates: start: 20090101
  2. PRISTIQ [Suspect]
     Dosage: UNK
  3. METOPROLOL [Concomitant]
     Indication: HYPERTENSION
     Dosage: 25 MG, UNK
  4. AVAPRO [Concomitant]
     Indication: HYPERTENSION
     Dosage: UNK
  5. FLEXERIL [Concomitant]
     Indication: MYALGIA
     Dosage: UNK

REACTIONS (7)
  - ASTHENIA [None]
  - BLOOD GLUCOSE INCREASED [None]
  - BLOOD SODIUM DECREASED [None]
  - DEPRESSION [None]
  - DRUG INEFFECTIVE [None]
  - HYPERTENSION [None]
  - POST-TRAUMATIC STRESS DISORDER [None]
